FAERS Safety Report 10776878 (Version 2)
Quarter: 2015Q1

REPORT INFORMATION
  Report Type: Spontaneous
  Country: US (occurrence: US)
  Receive Date: 20150209
  Receipt Date: 20150216
  Transmission Date: 20150721
  Serious: No
  Sender: FDA-Public Use
  Company Number: US-PFIZER INC-2015052091

PATIENT
  Age: 56 Year
  Sex: Female
  Weight: 77 kg

DRUGS (2)
  1. EFFEXOR XR [Suspect]
     Active Substance: VENLAFAXINE HYDROCHLORIDE
     Indication: MENOPAUSE
     Dosage: 150 MG, 1X/DAY
  2. EFFEXOR XR [Suspect]
     Active Substance: VENLAFAXINE HYDROCHLORIDE
     Indication: HOT FLUSH

REACTIONS (4)
  - Tinnitus [Unknown]
  - Feeling of body temperature change [Unknown]
  - Speech disorder [Unknown]
  - Dizziness [Unknown]
